FAERS Safety Report 4832486-2 (Version None)
Quarter: 2005Q4

REPORT INFORMATION
  Report Type: 
  Country: None (occurrence: None)
  Receive Date: 20051117
  Receipt Date: 20051102
  Transmission Date: 20060501
  Serious: Yes (Other)
  Sender: FDA-Public Use
  Company Number: 2005-BP-19148RO

PATIENT
  Age: 46 Year
  Sex: Male

DRUGS (3)
  1. FUROSEMIDE [Suspect]
     Indication: OEDEMA
     Dosage: IV
     Route: 042
  2. BETA-BLOCKER (BETA BLOCKING AGENTS) [Suspect]
     Indication: HYPERTENSIVE HEART DISEASE
  3. LEVOTHYROXINE SODIUM [Concomitant]

REACTIONS (11)
  - BRADYCARDIA [None]
  - CARDIAC FAILURE CONGESTIVE [None]
  - CARDIAC MURMUR [None]
  - ELECTROCARDIOGRAM LOW VOLTAGE [None]
  - HYPOTHYROIDISM [None]
  - HYPOVOLAEMIA [None]
  - OEDEMA PERIPHERAL [None]
  - PERICARDIAL EFFUSION [None]
  - SINUS BRADYCARDIA [None]
  - SYNCOPE [None]
  - VENTRICULAR HYPERTROPHY [None]
